FAERS Safety Report 4745783-6 (Version None)
Quarter: 2005Q3

REPORT INFORMATION
  Report Type: 
  Country: None (occurrence: None)
  Receive Date: 20050816
  Receipt Date: 20050113
  Transmission Date: 20060218
  Serious: No
  Sender: FDA-Public Use
  Company Number: US-BRISTOL-MYERS SQUIBB COMPANY-12825626

PATIENT
  Age: 84 Year
  Sex: Female

DRUGS (1)
  1. LAC-HYDRIN [Suspect]
     Route: 061
     Dates: start: 20030101

REACTIONS (1)
  - PAIN [None]
